FAERS Safety Report 5897811-2 (Version None)
Quarter: 2008Q3

REPORT INFORMATION
  Report Type: 
  Country: None (occurrence: None)
  Receive Date: 20080924
  Receipt Date: 20080924
  Transmission Date: 20090109
  Serious: Yes (Other)
  Sender: FDA-Public Use
  Company Number: None

PATIENT
  Age: 54 Year
  Sex: Female
  Weight: 77.5651 kg

DRUGS (1)
  1. CEPHALEXIN [Suspect]
     Indication: URINARY TRACT INFECTION
     Dosage: 1 CAPSUL 4 TIMES A DAY PO
     Route: 048
     Dates: start: 20080910, end: 20080912

REACTIONS (3)
  - ABNORMAL SENSATION IN EYE [None]
  - PHOTOPHOBIA [None]
  - VISION BLURRED [None]
